FAERS Safety Report 11981899 (Version 1)
Quarter: 2016Q1

REPORT INFORMATION
  Report Type: Spontaneous
  Country: US (occurrence: US)
  Receive Date: 20160201
  Receipt Date: 20160201
  Transmission Date: 20160526
  Serious: No
  Sender: FDA-Public Use
  Company Number: PHEH2016US001935

PATIENT
  Sex: Female

DRUGS (1)
  1. AFINITOR [Suspect]
     Active Substance: EVEROLIMUS
     Indication: BREAST CANCER
     Route: 065

REACTIONS (6)
  - Fatigue [Recovering/Resolving]
  - Acne cystic [Recovering/Resolving]
  - Urticaria [Recovering/Resolving]
  - Paraesthesia [Recovering/Resolving]
  - Erythema [Recovering/Resolving]
  - Hypoaesthesia [Recovering/Resolving]
